FAERS Safety Report 6988684-5 (Version None)
Quarter: 2010Q3

REPORT INFORMATION
  Report Type: 
  Country: None (occurrence: None)
  Receive Date: 20100830
  Receipt Date: 20100416
  Transmission Date: 20110219
  Serious: No
  Sender: FDA-Public Use
  Company Number: 2010049266

PATIENT
  Sex: Male

DRUGS (2)
  1. TOVIAZ [Suspect]
     Indication: BLADDER CANCER
     Dosage: 8 MG, 1X/DAY, ORAL
     Route: 048
     Dates: start: 20100411
  2. TOVIAZ [Suspect]
     Indication: URINARY INCONTINENCE
     Dosage: 8 MG, 1X/DAY, ORAL
     Route: 048
     Dates: start: 20100411

REACTIONS (1)
  - GASTROOESOPHAGEAL REFLUX DISEASE [None]
